FAERS Safety Report 6689961-8 (Version None)
Quarter: 2010Q2

REPORT INFORMATION
  Report Type: 
  Country: None (occurrence: None)
  Receive Date: 20100421
  Receipt Date: 20100409
  Transmission Date: 20101027
  Serious: Yes (Other)
  Sender: FDA-Public Use
  Company Number: DK-PFIZER INC-2010045481

PATIENT
  Age: 19 Year
  Sex: Female

DRUGS (4)
  1. ZELDOX [Suspect]
     Indication: MENTAL DISORDER
     Dosage: 40 MG, UNK
     Dates: start: 20030508, end: 20040101
  2. ZYPREXA [Suspect]
     Indication: MENTAL DISORDER
     Dosage: UNK
     Dates: start: 20020101, end: 20030101
  3. ZYPREXA [Suspect]
     Indication: HALLUCINATION
  4. EFFEXOR [Suspect]
     Indication: MENTAL DISORDER
     Dosage: 75 MG, 4X/DAY
     Dates: start: 20030710

REACTIONS (7)
  - AMNESIA [None]
  - ANXIETY [None]
  - DISTURBANCE IN ATTENTION [None]
  - LEARNING DISORDER [None]
  - PSYCHIATRIC SYMPTOM [None]
  - SELF ESTEEM DECREASED [None]
  - WEIGHT INCREASED [None]
